FAERS Safety Report 8920884 (Version 1)
Quarter: 2012Q4

REPORT INFORMATION
  Report Type: 
  Country: US (occurrence: US)
  Receive Date: 20121122
  Receipt Date: 20121122
  Transmission Date: 20130627
  Serious: No
  Sender: FDA-Public Use
  Company Number: US-PFIZER INC-2012289540

PATIENT
  Age: 77 Year
  Sex: Male
  Weight: 77.1 kg

DRUGS (10)
  1. DICLOFENAC EPOLAMINE [Suspect]
     Dosage: 75 mg, 2x/day
  2. ARICEPT [Suspect]
     Dosage: UNK
  3. NORCO [Suspect]
     Indication: ARTHRITIC PAINS
     Dosage: UNK, 3x/day
     Dates: start: 2012
  4. NORCO [Suspect]
     Dosage: UNK, as needed
  5. METAMUCIL [Suspect]
     Indication: CONSTIPATION
     Dosage: UNK
  6. VALERIAN ROOT [Suspect]
     Indication: SLEEP PROBLEM
     Dosage: UNK
  7. CYMBALTA [Suspect]
     Dosage: UNK
  8. RESTORIL [Suspect]
     Indication: SLEEP PROBLEM
     Dosage: 30 mg, daily
  9. FLOMAX [Concomitant]
     Indication: PROSTATIC DISORDER
     Dosage: 0.4 mg, daily
  10. LOVASTATIN [Concomitant]
     Dosage: UNK

REACTIONS (4)
  - Fall [Unknown]
  - Osteoarthritis [Unknown]
  - Meniscus injury [Unknown]
  - Post-traumatic pain [Unknown]
